FAERS Safety Report 13055602 (Version 2)
Quarter: 2017Q1

REPORT INFORMATION
  Report Type: Spontaneous
  Country: US (occurrence: US)
  Receive Date: 20161222
  Receipt Date: 20170103
  Transmission Date: 20170428
  Serious: No
  Sender: FDA-Public Use
  Company Number: US-009507513-1612USA011732

PATIENT
  Sex: Female

DRUGS (4)
  1. REMERON [Suspect]
     Active Substance: MIRTAZAPINE
     Indication: GASTRIC DISORDER
     Route: 048
  2. REMERON [Suspect]
     Active Substance: MIRTAZAPINE
     Indication: DEPRESSION
  3. REMERON [Suspect]
     Active Substance: MIRTAZAPINE
     Indication: GASTRIC DISORDER
     Route: 048
  4. REMERON [Suspect]
     Active Substance: MIRTAZAPINE
     Indication: DEPRESSION

REACTIONS (5)
  - Blister [Unknown]
  - Product use issue [Unknown]
  - Drug hypersensitivity [Unknown]
  - Dermatitis allergic [Recovered/Resolved]
  - Asthma [Unknown]
